FAERS Safety Report 9396869 (Version 1)
Quarter: 2013Q3

REPORT INFORMATION
  Report Type: Spontaneous
  Country: US (occurrence: US)
  Receive Date: 20130712
  Receipt Date: 20130712
  Transmission Date: 20140515
  Serious: No
  Sender: FDA-Public Use
  Company Number: US-BIOGENIDEC-2013BI061808

PATIENT
  Age: 45 Year
  Sex: Female

DRUGS (2)
  1. TYSABRI [Suspect]
     Indication: MULTIPLE SCLEROSIS
     Route: 042
     Dates: start: 20120531, end: 20120628
  2. PREDNISONE [Concomitant]
     Indication: PREMEDICATION
     Route: 048

REACTIONS (2)
  - Abasia [Recovered/Resolved]
  - Fatigue [Recovered/Resolved]
